FAERS Safety Report 9567763 (Version 2)
Quarter: 2013Q3

REPORT INFORMATION
  Report Type: Spontaneous
  Country: US (occurrence: US)
  Receive Date: 20130930
  Receipt Date: 20130930
  Transmission Date: 20140515
  Serious: No
  Sender: FDA-Public Use
  Company Number: US-AMGEN-USASP2013013157

PATIENT
  Age: 49 Year
  Sex: Female
  Weight: 72.11 kg

DRUGS (11)
  1. ENBREL [Suspect]
     Indication: PSORIATIC ARTHROPATHY
     Dosage: 50 MG, QWK
     Route: 058
     Dates: start: 20121114, end: 201301
  2. SPIRIVA HANDIHALER [Concomitant]
     Dosage: UNK
  3. SYMBICORT [Concomitant]
     Dosage: AER 80-4.5
  4. VICODIN [Concomitant]
     Dosage: 5-500 MG
  5. OMEPRAZOLE [Concomitant]
     Dosage: 40 MG, UNK
  6. LORAZEPAM [Concomitant]
     Dosage: 0.5 MG, UNK
  7. LYRICA [Concomitant]
     Dosage: 50 MG, UNK
  8. FOLIC ACID [Concomitant]
     Dosage: UNK
  9. GABAPENTIN [Concomitant]
     Dosage: 100 MG, UNK
  10. DICYCLOMINE                        /00068601/ [Concomitant]
     Dosage: 20 MG, UNK
  11. COMBIVENT [Concomitant]
     Dosage: AER

REACTIONS (1)
  - Drug ineffective [Not Recovered/Not Resolved]
